FAERS Safety Report 23111141 (Version 1)
Quarter: 2023Q4

REPORT INFORMATION
  Report Type: Spontaneous
  Country: GB (occurrence: GB)
  Receive Date: 20231026
  Receipt Date: 20231026
  Transmission Date: 20240109
  Serious: Yes (Other)
  Sender: FDA-Public Use
  Company Number: GB-JAZZ-2021-GB-002733

PATIENT
  Age: 12 Month
  Sex: Male

DRUGS (1)
  1. DEFITELIO [Suspect]
     Active Substance: DEFIBROTIDE SODIUM
     Indication: Prophylaxis
     Dosage: THERAPY DETAILS NOT PROVIDED
     Route: 065

REACTIONS (3)
  - Gastrointestinal haemorrhage [Unknown]
  - Hepatic function abnormal [Unknown]
  - Off label use [Unknown]
